FAERS Safety Report 11752708 (Version 1)
Quarter: 2015Q4

REPORT INFORMATION
  Report Type: Other
  Country: NP (occurrence: NP)
  Receive Date: 20151119
  Receipt Date: 20151119
  Transmission Date: 20160304
  Serious: Yes (Hospitalization)
  Sender: FDA-Public Use
  Company Number: NP-LUPIN PHARMACEUTICALS INC.-2015-03649

PATIENT
  Age: 26 Year
  Sex: Female

DRUGS (3)
  1. FAMOTIDINE. [Suspect]
     Active Substance: FAMOTIDINE
     Indication: DYSPEPSIA
     Route: 065
  2. ACETAMINOPHEN. [Concomitant]
     Active Substance: ACETAMINOPHEN
     Indication: TORTICOLLIS
     Route: 065
  3. TIZANIDINE. [Interacting]
     Active Substance: TIZANIDINE
     Indication: TORTICOLLIS
     Route: 065

REACTIONS (2)
  - Cystitis [Recovered/Resolved]
  - Drug interaction [Unknown]
